FAERS Safety Report 12387716 (Version 1)
Quarter: 2016Q2

REPORT INFORMATION
  Report Type: Spontaneous
  Country: US (occurrence: US)
  Receive Date: 20160520
  Receipt Date: 20160520
  Transmission Date: 20160815
  Serious: Yes (Hospitalization)
  Sender: FDA-Public Use
  Company Number: US-THE MEDICINES COMPANY-US-MDCO-16-00144

PATIENT
  Sex: Male
  Weight: 227 kg

DRUGS (1)
  1. ORBACTIV [Suspect]
     Active Substance: ORITAVANCIN
     Indication: CELLULITIS
     Dosage: 400CC
     Route: 041
     Dates: start: 20160512

REACTIONS (4)
  - Chest pain [Unknown]
  - Off label use [Unknown]
  - Dyspnoea [Unknown]
  - Tachycardia [Unknown]

NARRATIVE: CASE EVENT DATE: 20160512
